FAERS Safety Report 6349659-2 (Version None)
Quarter: 2009Q3

REPORT INFORMATION
  Report Type: 
  Country: None (occurrence: None)
  Receive Date: 20090911
  Receipt Date: 20090901
  Transmission Date: 20100115
  Serious: Yes (Hospitalization, Other)
  Sender: FDA-Public Use
  Company Number: PHHO2007US04390

PATIENT
  Sex: Female
  Weight: 69.7 kg

DRUGS (8)
  1. AMN107 AMN+CAP [Suspect]
     Indication: ACUTE LYMPHOCYTIC LEUKAEMIA
     Dosage: 800MG
     Route: 048
     Dates: start: 20060221
  2. ACYCLOVIR [Concomitant]
  3. ATIVAN [Concomitant]
  4. ASCORBIC ACID [Concomitant]
  5. CYMBALTA [Concomitant]
  6. RESTORIL [Concomitant]
  7. SENOKOT [Concomitant]
  8. SYNTHROID [Concomitant]

REACTIONS (21)
  - ANXIETY [None]
  - BLOOD CREATININE INCREASED [None]
  - CHEST DISCOMFORT [None]
  - COUGH [None]
  - DYSPNOEA [None]
  - EJECTION FRACTION ABNORMAL [None]
  - EOSINOPHIL COUNT INCREASED [None]
  - FUNGAL INFECTION [None]
  - HERPES ZOSTER [None]
  - HYPOTENSION [None]
  - JAW DISORDER [None]
  - LEFT VENTRICULAR DYSFUNCTION [None]
  - LEUKOCYTOSIS [None]
  - ORAL CANDIDIASIS [None]
  - PNEUMONIA [None]
  - PYREXIA [None]
  - RALES [None]
  - RENAL FAILURE ACUTE [None]
  - SPUTUM ABNORMAL [None]
  - TACHYCARDIA [None]
  - TROPONIN INCREASED [None]
